FAERS Safety Report 8182219-X (Version None)
Quarter: 2012Q1

REPORT INFORMATION
  Report Type: 
  Country: None (occurrence: None)
  Receive Date: 20120302
  Receipt Date: 20120223
  Transmission Date: 20120608
  Serious: Yes (Hospitalization)
  Sender: FDA-Public Use
  Company Number: PHHY2012FR016638

PATIENT
  Sex: Female

DRUGS (12)
  1. RABEPRAZOLE SODIUM [Suspect]
     Dosage: UNK
     Route: 048
     Dates: start: 20111214
  2. CLOPIDOGREL [Concomitant]
  3. AMOXICILLIN [Suspect]
     Dosage: UNK
     Route: 048
     Dates: start: 20111205
  4. ISKEDYL [Suspect]
     Dosage: UNK
     Dates: start: 20111213
  5. ALPRAZOLAM [Concomitant]
  6. BECLOMETHASONE DIPROPIONATE [Suspect]
     Dosage: UNK
     Dates: start: 20111205, end: 20111214
  7. ROPINIROLE HYDROCHLORIDE [Concomitant]
  8. GAVISCON [Concomitant]
  9. RACECADOTRIL [Suspect]
     Dosage: UNK
     Route: 048
     Dates: start: 20111208
  10. HELICIDINE [Suspect]
     Dosage: UNK
     Route: 048
     Dates: start: 20111205
  11. MOLSIDOMINE [Concomitant]
  12. SOTALOL HCL [Concomitant]

REACTIONS (4)
  - HYPONATRAEMIA [None]
  - ABNORMAL BEHAVIOUR [None]
  - OEDEMA PERIPHERAL [None]
  - DIARRHOEA [None]
